FAERS Safety Report 7237087-7 (Version None)
Quarter: 2011Q1

REPORT INFORMATION
  Report Type: 
  Country: None (occurrence: None)
  Receive Date: 20110121
  Receipt Date: 20110112
  Transmission Date: 20110831
  Serious: Yes (Other)
  Sender: FDA-Public Use
  Company Number: US-GENZYME-FABR-1001436

PATIENT

DRUGS (4)
  1. FABRAZYME [Suspect]
     Dosage: 70 MG, Q2W
     Route: 042
     Dates: start: 20030101
  2. FABRAZYME [Suspect]
     Dosage: UNK
     Route: 042
     Dates: start: 20070101
  3. SYNTHROID [Concomitant]
     Indication: PRODUCT USED FOR UNKNOWN INDICATION
  4. FABRAZYME [Suspect]
     Indication: FABRY'S DISEASE
     Dosage: 35 MG, Q2W
     Route: 042
     Dates: start: 20100401

REACTIONS (13)
  - ANGIOPATHY [None]
  - NECK PAIN [None]
  - DEPRESSED LEVEL OF CONSCIOUSNESS [None]
  - LOSS OF CONSCIOUSNESS [None]
  - HEADACHE [None]
  - TREMOR [None]
  - SENSORY LOSS [None]
  - DEAFNESS [None]
  - DIARRHOEA [None]
  - BALANCE DISORDER [None]
  - MIGRAINE [None]
  - MENTAL STATUS CHANGES [None]
  - CHEST PAIN [None]
